FAERS Safety Report 17110107 (Version 1)
Quarter: 2019Q4

REPORT INFORMATION
  Report Type: Spontaneous
  Country: US (occurrence: US)
  Receive Date: 20191204
  Receipt Date: 20191204
  Transmission Date: 20200122
  Serious: Yes (Other)
  Sender: FDA-Public Use
  Company Number: US-TAKEDA-2018TUS032771

PATIENT

DRUGS (65)
  1. PREVACID [Suspect]
     Active Substance: LANSOPRAZOLE
     Indication: PRODUCT USED FOR UNKNOWN INDICATION
     Dosage: UNK
     Route: 048
  2. LANSOPRAZOLE. [Suspect]
     Active Substance: LANSOPRAZOLE
     Indication: PRODUCT USED FOR UNKNOWN INDICATION
     Dosage: UNK
     Route: 048
  3. PROTONIX [Suspect]
     Active Substance: PANTOPRAZOLE SODIUM
     Dosage: 40 MILLIGRAM
     Route: 048
     Dates: start: 20160225
  4. NEXIUM [Suspect]
     Active Substance: ESOMEPRAZOLE MAGNESIUM
     Dosage: 40 MILLIGRAM
     Route: 048
     Dates: start: 20130204
  5. NEXIUM [Suspect]
     Active Substance: ESOMEPRAZOLE MAGNESIUM
     Dosage: 40 MILLIGRAM
     Route: 048
     Dates: start: 20140521
  6. NEXIUM [Suspect]
     Active Substance: ESOMEPRAZOLE MAGNESIUM
     Dosage: 40 MILLIGRAM
     Route: 048
     Dates: start: 20150106
  7. TRAMADOL. [Concomitant]
     Active Substance: TRAMADOL
     Indication: BLOOD PRESSURE ABNORMAL
  8. ATORVASTATIN [Concomitant]
     Active Substance: ATORVASTATIN
     Indication: BLOOD CHOLESTEROL
  9. LEVOFLOXACIN. [Concomitant]
     Active Substance: LEVOFLOXACIN
     Indication: ANTIBIOTIC THERAPY
  10. PROTONIX [Suspect]
     Active Substance: PANTOPRAZOLE SODIUM
     Indication: PRODUCT USED FOR UNKNOWN INDICATION
     Dosage: 40 MILLIGRAM
     Route: 048
     Dates: start: 2014
  11. PROTONIX [Suspect]
     Active Substance: PANTOPRAZOLE SODIUM
     Dosage: UNK
  12. NEXIUM [Suspect]
     Active Substance: ESOMEPRAZOLE MAGNESIUM
     Indication: GASTROOESOPHAGEAL REFLUX DISEASE
     Dosage: 40 MILLIGRAM
     Route: 048
     Dates: start: 2012, end: 2014
  13. NEXIUM [Suspect]
     Active Substance: ESOMEPRAZOLE MAGNESIUM
     Dosage: 40 MILLIGRAM
     Route: 048
     Dates: start: 20130703
  14. NEXIUM [Suspect]
     Active Substance: ESOMEPRAZOLE MAGNESIUM
     Dosage: 40 MILLIGRAM
     Route: 048
     Dates: start: 20141206
  15. NEXIUM [Suspect]
     Active Substance: ESOMEPRAZOLE MAGNESIUM
     Dosage: 40 MILLIGRAM
     Route: 048
     Dates: start: 20150304
  16. NEXIUM [Suspect]
     Active Substance: ESOMEPRAZOLE MAGNESIUM
     Dosage: 40 MILLIGRAM
     Route: 048
     Dates: start: 20150605
  17. TRAMADOL. [Concomitant]
     Active Substance: TRAMADOL
     Indication: PAIN
     Dosage: UNK
     Dates: start: 2013, end: 2016
  18. BABY ASPIRIN [Concomitant]
     Active Substance: ASPIRIN
     Indication: ANTICOAGULANT THERAPY
     Dosage: UNK
     Dates: start: 2016
  19. CLOPIDOGREL [Concomitant]
     Active Substance: CLOPIDOGREL BISULFATE
     Indication: ANTICOAGULANT THERAPY
  20. VENLAFAXINE [Concomitant]
     Active Substance: VENLAFAXINE HYDROCHLORIDE
     Indication: ANXIETY
  21. METHOCARBAMOL. [Concomitant]
     Active Substance: METHOCARBAMOL
     Indication: MUSCLE SPASMS
  22. PROTONIX [Suspect]
     Active Substance: PANTOPRAZOLE SODIUM
     Dosage: 40 MILLIGRAM
     Route: 048
     Dates: start: 20151209
  23. NEXIUM [Suspect]
     Active Substance: ESOMEPRAZOLE MAGNESIUM
     Dosage: 40 MILLIGRAM
     Route: 048
     Dates: start: 20140227
  24. NEXIUM [Suspect]
     Active Substance: ESOMEPRAZOLE MAGNESIUM
     Dosage: 40 MILLIGRAM
     Route: 048
     Dates: start: 20141023
  25. TRAMADOL. [Concomitant]
     Active Substance: TRAMADOL
     Indication: BLOOD CHOLESTEROL ABNORMAL
  26. PLAVIX [Concomitant]
     Active Substance: CLOPIDOGREL BISULFATE
     Indication: ANTICOAGULANT THERAPY
     Dosage: UNK
     Dates: start: 2015, end: 2018
  27. METOPROLOL. [Concomitant]
     Active Substance: METOPROLOL
     Indication: HYPERTENSION
  28. PANTOPRAZOLE [Suspect]
     Active Substance: PANTOPRAZOLE
     Indication: PRODUCT USED FOR UNKNOWN INDICATION
     Dosage: UNK
     Route: 048
  29. OMEPRAZOLE. [Suspect]
     Active Substance: OMEPRAZOLE
     Indication: PRODUCT USED FOR UNKNOWN INDICATION
     Dosage: UNK
     Route: 048
  30. NEXIUM [Suspect]
     Active Substance: ESOMEPRAZOLE MAGNESIUM
     Dosage: 40 MILLIGRAM
     Route: 048
     Dates: start: 20150106
  31. LIPITOR [Concomitant]
     Active Substance: ATORVASTATIN CALCIUM
     Indication: BLOOD CHOLESTEROL ABNORMAL
     Dosage: UNK
     Dates: start: 2015, end: 2017
  32. TACROLIMUS. [Concomitant]
     Active Substance: TACROLIMUS
  33. AMOXICILLIN. [Concomitant]
     Active Substance: AMOXICILLIN
     Indication: ANTIBIOTIC THERAPY
  34. HYDROCODONE [Concomitant]
     Active Substance: HYDROCODONE
     Indication: PAIN
  35. OXYCODONE [Concomitant]
     Active Substance: OXYCODONE
     Indication: PAIN
  36. SENSIPAR [Concomitant]
     Active Substance: CINACALCET HYDROCHLORIDE
     Indication: BLOOD CALCIUM ABNORMAL
  37. PROMETHAZINE [Concomitant]
     Active Substance: PROMETHAZINE HYDROCHLORIDE
     Indication: HYPERSENSITIVITY
  38. PROTONIX [Suspect]
     Active Substance: PANTOPRAZOLE SODIUM
     Dosage: 40 MILLIGRAM
     Route: 048
     Dates: start: 20160130
  39. NEXIUM [Suspect]
     Active Substance: ESOMEPRAZOLE MAGNESIUM
     Dosage: 40 MILLIGRAM
     Route: 048
     Dates: start: 20130716
  40. NEXIUM [Suspect]
     Active Substance: ESOMEPRAZOLE MAGNESIUM
     Dosage: 40 MILLIGRAM
     Route: 048
     Dates: start: 20130531
  41. NEXIUM [Suspect]
     Active Substance: ESOMEPRAZOLE MAGNESIUM
     Dosage: 40 MILLIGRAM
     Route: 048
     Dates: start: 20150730
  42. LISINOPRIL. [Concomitant]
     Active Substance: LISINOPRIL
     Indication: BLOOD PRESSURE ABNORMAL
  43. AMLODIPINE BESYLATE. [Concomitant]
     Active Substance: AMLODIPINE BESYLATE
     Indication: HYPERTENSION
  44. ESCITALOPRAM [Concomitant]
     Active Substance: ESCITALOPRAM OXALATE
     Indication: ANXIETY
  45. GABAPENTIN. [Concomitant]
     Active Substance: GABAPENTIN
     Indication: PAIN
  46. PREDNISONE. [Concomitant]
     Active Substance: PREDNISONE
     Indication: STEROID THERAPY
  47. TRIMETHOPRIM. [Concomitant]
     Active Substance: TRIMETHOPRIM
  48. PROTONIX [Suspect]
     Active Substance: PANTOPRAZOLE SODIUM
     Dosage: 40 MILLIGRAM
     Route: 048
     Dates: start: 20160417
  49. NEXIUM [Suspect]
     Active Substance: ESOMEPRAZOLE MAGNESIUM
     Dosage: 40 MILLIGRAM
     Route: 048
     Dates: start: 20140423
  50. NEXIUM [Suspect]
     Active Substance: ESOMEPRAZOLE MAGNESIUM
     Dosage: 40 MILLIGRAM
     Route: 048
     Dates: start: 20150502
  51. NEXIUM [Suspect]
     Active Substance: ESOMEPRAZOLE MAGNESIUM
     Dosage: 40 MILLIGRAM
     Route: 048
     Dates: start: 20150630
  52. BACTRIM [Concomitant]
     Active Substance: SULFAMETHOXAZOLE\TRIMETHOPRIM
     Indication: INFECTION
     Dosage: UNK
     Dates: start: 2016
  53. CIPROFLOXACIN. [Concomitant]
     Active Substance: CIPROFLOXACIN
     Indication: ANTIBIOTIC THERAPY
  54. ENDOCET [Concomitant]
     Active Substance: ACETAMINOPHEN\OXYCODONE HYDROCHLORIDE
     Indication: PAIN
  55. FUROSEMIDE. [Concomitant]
     Active Substance: FUROSEMIDE
     Indication: FLUID RETENTION
  56. TIZANIDINE. [Concomitant]
     Active Substance: TIZANIDINE
     Indication: MUSCLE SPASMS
  57. NEXIUM [Suspect]
     Active Substance: ESOMEPRAZOLE MAGNESIUM
     Dosage: 40 MILLIGRAM
     Route: 048
     Dates: start: 20120811
  58. NEXIUM [Suspect]
     Active Substance: ESOMEPRAZOLE MAGNESIUM
     Dosage: 40 MILLIGRAM
     Route: 048
     Dates: start: 20150830
  59. BRILINTA [Concomitant]
     Active Substance: TICAGRELOR
     Indication: ANTICOAGULANT THERAPY
  60. TRAMADOL. [Concomitant]
     Active Substance: TRAMADOL
     Indication: PROPHYLAXIS AGAINST TRANSPLANT REJECTION
  61. ACETAMINOPHEN. [Concomitant]
     Active Substance: ACETAMINOPHEN
     Indication: HEADACHE
     Dosage: UNK
  62. CRESTOR [Concomitant]
     Active Substance: ROSUVASTATIN CALCIUM
     Indication: BLOOD CHOLESTEROL INCREASED
  63. FLUCONAZOLE. [Concomitant]
     Active Substance: FLUCONAZOLE
     Indication: FUNGAL INFECTION
  64. CARVEDILOL. [Concomitant]
     Active Substance: CARVEDILOL
     Indication: HYPERTENSION
  65. RENVELA [Concomitant]
     Active Substance: SEVELAMER CARBONATE
     Indication: BLOOD PHOSPHORUS DECREASED

REACTIONS (4)
  - Renal failure [Not Recovered/Not Resolved]
  - Nephropathy [Not Recovered/Not Resolved]
  - Depression [Unknown]
  - Anxiety [Unknown]

NARRATIVE: CASE EVENT DATE: 2012
